FAERS Safety Report 9150062 (Version 1)
Quarter: 2013Q1

REPORT INFORMATION
  Report Type: Spontaneous
  Country: DK (occurrence: None)
  Receive Date: 20130131
  Receipt Date: 20130131
  Transmission Date: 20140127
  Serious: Yes (Other)
  Sender: FDA-Public Use
  Company Number: 2013MA000760

PATIENT
  Age: 67 Year
  Sex: Male

DRUGS (6)
  1. METFORMIN HYDROCHLORIDE [Suspect]
     Indication: HYPERGLYCAEMIA
     Route: 048
     Dates: start: 20020101, end: 20121201
  2. SITAGLIPTIN [Concomitant]
  3. GLIBOMET [Concomitant]
  4. AMLODIPINE [Concomitant]
  5. KARVEZIDE [Concomitant]
  6. NEBILOX [Concomitant]

REACTIONS (1)
  - Coeliac disease [None]
